FAERS Safety Report 8934875 (Version 2)
Quarter: 2012Q4

REPORT INFORMATION
  Report Type: 
  Country: ZA (occurrence: ZA)
  Receive Date: 20121129
  Receipt Date: 20121206
  Transmission Date: 20130627
  Serious: Yes (Other)
  Sender: FDA-Public Use
  Company Number: ZA-AMGEN-ZAFSP2012075894

PATIENT
  Age: 82 Year
  Sex: Female

DRUGS (1)
  1. ARANESP [Suspect]
     Indication: PRODUCT USED FOR UNKNOWN INDICATION
     Dosage: 60 mug, q2wk
     Route: 058
     Dates: start: 20121122, end: 20121123

REACTIONS (2)
  - Hypersensitivity [Unknown]
  - Rash generalised [Unknown]
